FAERS Safety Report 6155922-0 (Version None)
Quarter: 2009Q2

REPORT INFORMATION
  Report Type: 
  Country: None (occurrence: None)
  Receive Date: 20090415
  Receipt Date: 20090407
  Transmission Date: 20091009
  Serious: Yes (Death)
  Sender: FDA-Public Use
  Company Number: RU-ROCHE-626879

PATIENT
  Sex: Female
  Weight: 89 kg

DRUGS (6)
  1. CAPECITABINE [Suspect]
     Indication: DRUG USE FOR UNKNOWN INDICATION
     Route: 048
     Dates: start: 20090317, end: 20090320
  2. DOCETAXEL [Suspect]
     Indication: DRUG USE FOR UNKNOWN INDICATION
     Route: 042
     Dates: start: 20090317, end: 20090317
  3. OXALIPLATIN [Suspect]
     Indication: GASTRIC CANCER
     Route: 042
     Dates: start: 20090317, end: 20090317
  4. TRAMADOL [Concomitant]
     Indication: PAIN
     Route: 048
     Dates: start: 20090316, end: 20090329
  5. CERUCAL [Concomitant]
     Indication: NAUSEA
     Route: 048
     Dates: start: 20090301, end: 20090329
  6. BARALGIN [Concomitant]
     Indication: PAIN
     Route: 030
     Dates: start: 20090301, end: 20090329

REACTIONS (5)
  - ANOREXIA [None]
  - DIARRHOEA [None]
  - FATIGUE [None]
  - NAUSEA [None]
  - VOMITING [None]
